FAERS Safety Report 16468731 (Version 1)
Quarter: 2019Q2

REPORT INFORMATION
  Report Type: Spontaneous
  Country: US (occurrence: US)
  Receive Date: 20190624
  Receipt Date: 20190624
  Transmission Date: 20190711
  Serious: Yes (Hospitalization)
  Sender: FDA-Public Use
  Company Number: US-ELI_LILLY_AND_COMPANY-US201906009279

PATIENT
  Age: 58 Year
  Sex: Female
  Weight: 108.9 kg

DRUGS (2)
  1. EXEMESTANE. [Suspect]
     Active Substance: EXEMESTANE
     Indication: SKIN CANCER
     Dosage: 25 MG, DAILY
     Route: 048
     Dates: start: 20181217, end: 20190110
  2. VERZENIO [Suspect]
     Active Substance: ABEMACICLIB
     Indication: SKIN CANCER
     Dosage: 150 MG, BID
     Route: 048
     Dates: start: 20181016, end: 20190110

REACTIONS (2)
  - Palpitations [Unknown]
  - Off label use [Unknown]
